FAERS Safety Report 15987626 (Version 2)
Quarter: 2019Q1

REPORT INFORMATION
  Report Type: Spontaneous
  Country: DE (occurrence: DE)
  Receive Date: 20190220
  Receipt Date: 20190301
  Transmission Date: 20190418
  Serious: Yes (Death, Hospitalization, Other)
  Sender: FDA-Public Use
  Company Number: DE-SHIRE-DE201905534

PATIENT

DRUGS (4)
  1. HEPARIN [Concomitant]
     Active Substance: HEPARIN SODIUM
     Indication: ANTICOAGULANT THERAPY
  2. ADYNOVI [Suspect]
     Active Substance: ANTIHEMOPHILIC FACTOR, HUMAN RECOMBINANT
     Indication: PRODUCT USED FOR UNKNOWN INDICATION
     Route: 065
  3. ADYNOVI [Suspect]
     Active Substance: ANTIHEMOPHILIC FACTOR, HUMAN RECOMBINANT
     Dosage: 2000 INTERNATIONAL UNIT
     Route: 065
     Dates: start: 20190201
  4. ADYNOVI [Suspect]
     Active Substance: ANTIHEMOPHILIC FACTOR, HUMAN RECOMBINANT
     Dosage: 2000 INTERNATIONAL UNIT, 2X/DAY:BID
     Route: 065
     Dates: start: 20190203

REACTIONS (13)
  - Headache [Unknown]
  - Endocarditis [Unknown]
  - Staphylococcal infection [Unknown]
  - Somnolence [Unknown]
  - Haemorrhage intracranial [Fatal]
  - Seizure [Unknown]
  - Sepsis [Unknown]
  - Myocarditis [None]
  - Intracardiac thrombus [Unknown]
  - Cerebral haemorrhage [Fatal]
  - Visual impairment [Unknown]
  - Back pain [Unknown]
  - Myocarditis [Unknown]

NARRATIVE: CASE EVENT DATE: 20190207
